FAERS Safety Report 9661322 (Version 3)
Quarter: 2013Q4

REPORT INFORMATION
  Report Type: Spontaneous
  Country: JP (occurrence: JP)
  Receive Date: 20131031
  Receipt Date: 20131111
  Transmission Date: 20140711
  Serious: Yes (Other)
  Sender: FDA-Public Use
  Company Number: JP-BRISTOL-MYERS SQUIBB COMPANY-19167824

PATIENT
  Age: 32 Year
  Sex: Female

DRUGS (3)
  1. ABILIFY TABS [Suspect]
     Route: 048
     Dates: start: 201210
  2. TASMOLIN [Concomitant]
  3. AMOBAN [Concomitant]
     Dosage: TABLET

REACTIONS (2)
  - Abortion [Unknown]
  - Pregnancy [Recovered/Resolved]
